FAERS Safety Report 10304793 (Version 2)
Quarter: 2014Q3

REPORT INFORMATION
  Report Type: Spontaneous
  Country: GB (occurrence: None)
  Receive Date: 20140710
  Receipt Date: 20140813
  Transmission Date: 20150326
  Serious: Yes (Other)
  Sender: FDA-Public Use
  Company Number: AUR-APL-2014-07251

PATIENT
  Age: 39 Year
  Sex: Female

DRUGS (7)
  1. MIRTAZAPINE (MIRTAZAPINE) ORODISPERSIBLE TABLET [Suspect]
     Active Substance: MIRTAZAPINE
     Indication: MENIERE^S DISEASE
     Dosage: 15 MG, ONCE A DAY, ORAL
     Route: 048
     Dates: start: 20140425
  2. PROCHLORPERAZINE (PROCHLORPERAZINE) [Concomitant]
     Active Substance: PROCHLORPERAZINE
  3. MIRTAZAPINE 30MG (MIRTAZAPINE) UNKNOWN, 30MG [Suspect]
     Active Substance: MIRTAZAPINE
     Indication: PRODUCT USED FOR UNKNOWN INDICATION
     Dosage: 30 MG, ONCE A DAY, ORAL
     Route: 048
     Dates: start: 20140512
  4. SERC /00034201/ (THIORIDAZINE) [Concomitant]
  5. BENDROFLUMETHIAZIDE (BENDROFLUMETHIAZIDE) [Concomitant]
     Active Substance: BENDROFLUMETHIAZIDE
  6. MOTILIUM /00498201/ (DOMPERIDONE) [Concomitant]
  7. BETAHISTINE (BETAHISTINE) [Concomitant]
     Active Substance: BETAHISTINE

REACTIONS (13)
  - Malaise [None]
  - Panic reaction [None]
  - Abdominal distension [None]
  - Nausea [None]
  - Depression [None]
  - Condition aggravated [None]
  - Anxiety [None]
  - Pain in extremity [None]
  - Dyspnoea [None]
  - Rash [None]
  - Tremor [None]
  - Vertigo [None]
  - Pruritus generalised [None]

NARRATIVE: CASE EVENT DATE: 20140501
